FAERS Safety Report 14973935 (Version 1)
Quarter: 2018Q2

REPORT INFORMATION
  Report Type: Spontaneous
  Country: US (occurrence: US)
  Receive Date: 20180514
  Receipt Date: 20180514
  Transmission Date: 20180711
  Serious: Yes (Life-Threatening)
  Sender: FDA-Public Use
  Company Number: None

PATIENT
  Age: 18 Year
  Sex: Male
  Weight: 81 kg

DRUGS (4)
  1. ACCUTANE [Concomitant]
     Active Substance: ISOTRETINOIN
  2. VITAMINS [Concomitant]
     Active Substance: VITAMINS
  3. VENTOLIN [Concomitant]
     Active Substance: ALBUTEROL SULFATE
  4. QVAR [Suspect]
     Active Substance: BECLOMETHASONE DIPROPIONATE
     Indication: ASTHMA
     Dosage: ?          OTHER STRENGTH:80 MCG;QUANTITY:2 PUFF(S);?
     Route: 048

REACTIONS (4)
  - Failure of child resistant mechanism for pharmaceutical product [None]
  - Product design issue [None]
  - Accidental exposure to product [None]
  - Foreign body in respiratory tract [None]

NARRATIVE: CASE EVENT DATE: 20180509
